FAERS Safety Report 15640898 (Version 4)
Quarter: 2019Q2

REPORT INFORMATION
  Report Type: Report from Study
  Country: US (occurrence: US)
  Receive Date: 20181120
  Receipt Date: 20190429
  Transmission Date: 20190711
  Serious: Yes (Hospitalization, Other)
  Sender: FDA-Public Use
  Company Number: US-ACTELION-A-NJ2018-167647

PATIENT
  Age: 66 Year
  Sex: Female
  Weight: 68.48 kg

DRUGS (3)
  1. WARFARIN [Concomitant]
     Active Substance: WARFARIN
  2. OPSUMIT [Suspect]
     Active Substance: MACITENTAN
     Indication: PULMONARY HYPERTENSION
     Dosage: 10 MG, QD
     Route: 048
  3. ADEMPAS [Concomitant]
     Active Substance: RIOCIGUAT

REACTIONS (15)
  - Dyspepsia [Unknown]
  - Rheumatoid arthritis [Unknown]
  - Oedema [Unknown]
  - Diarrhoea [Unknown]
  - Skin reaction [Unknown]
  - Gastrooesophageal reflux disease [Unknown]
  - Oxygen saturation decreased [Unknown]
  - Mobility decreased [Unknown]
  - Urticaria [Unknown]
  - Hospitalisation [Unknown]
  - Rash pruritic [Unknown]
  - Dyspnoea exertional [Unknown]
  - Arterial angioplasty [Unknown]
  - Arthropod bite [Unknown]
  - Pruritus [Unknown]

NARRATIVE: CASE EVENT DATE: 201805
